FAERS Safety Report 15890412 (Version 1)
Quarter: 2019Q1

REPORT INFORMATION
  Report Type: Spontaneous
  Country: AU (occurrence: AU)
  Receive Date: 20190130
  Receipt Date: 20190130
  Transmission Date: 20190417
  Serious: Yes (Other)
  Sender: FDA-Public Use
  Company Number: AU-ABBVIE-19K-008-2627429-00

PATIENT
  Age: 46 Year
  Sex: Male

DRUGS (4)
  1. ENBREL [Suspect]
     Active Substance: ETANERCEPT
     Route: 065
     Dates: start: 2009, end: 2018
  2. ENBREL [Suspect]
     Active Substance: ETANERCEPT
     Indication: PSORIATIC ARTHROPATHY
     Route: 065
     Dates: start: 2003, end: 2008
  3. ENBREL [Suspect]
     Active Substance: ETANERCEPT
     Route: 065
  4. HUMIRA [Suspect]
     Active Substance: ADALIMUMAB
     Indication: PRODUCT USED FOR UNKNOWN INDICATION
     Route: 058
     Dates: start: 2008, end: 2009

REACTIONS (13)
  - Psoriatic arthropathy [Unknown]
  - Appendicitis perforated [Unknown]
  - Thrombocytopenia [Unknown]
  - Abdominal abscess [Unknown]
  - Gastric infection [Unknown]
  - Infection [Unknown]
  - Psoriasis [Unknown]
  - Arthritis [Unknown]
  - Drug effect decreased [Unknown]
  - Abdominal infection [Unknown]
  - Otitis externa [Unknown]
  - Abscess intestinal [Unknown]
  - Transient global amnesia [Unknown]

NARRATIVE: CASE EVENT DATE: 2018
